FAERS Safety Report 6911126-2 (Version None)
Quarter: 2010Q3

REPORT INFORMATION
  Report Type: 
  Country: None (occurrence: None)
  Receive Date: 20100806
  Receipt Date: 20100802
  Transmission Date: 20110219
  Serious: Yes (Other)
  Sender: FDA-Public Use
  Company Number: JP-MERCK-1007USA03167

PATIENT
  Age: 27 Year
  Sex: Female

DRUGS (3)
  1. DECADRON [Suspect]
     Indication: MATERNAL THERAPY TO ENHANCE FOETAL LUNG MATURITY
     Dosage: 6.0 MG X 4/2 DAYS
     Route: 048
  2. RITODRINE HYDROCHLORIDE [Concomitant]
     Indication: TOCOLYSIS
     Route: 065
  3. MAGNESIUM SULFATE [Concomitant]
     Route: 065

REACTIONS (2)
  - DRUG EXPOSURE DURING PREGNANCY [None]
  - THREATENED LABOUR [None]
